FAERS Safety Report 8477199-3 (Version None)
Quarter: 2012Q2

REPORT INFORMATION
  Report Type: 
  Country: None (occurrence: None)
  Receive Date: 20120625
  Receipt Date: 20120625
  Transmission Date: 20120825
  Serious: Yes (Other)
  Sender: FDA-Public Use
  Company Number: None

PATIENT
  Age: 26 Year
  Sex: Female
  Weight: 77.1115 kg

DRUGS (1)
  1. ORTHO EVRA [Suspect]
     Indication: CONTRACEPTION
     Dosage: 3 PATCHES  1 PATCH PER WEEK  TRANSDERMAL
     Route: 062
     Dates: start: 20071001, end: 20111229

REACTIONS (2)
  - ANOSMIA [None]
  - PAROSMIA [None]
